FAERS Safety Report 7875463-X (Version None)
Quarter: 2011Q4

REPORT INFORMATION
  Report Type: 
  Country: None (occurrence: None)
  Receive Date: 20111031
  Receipt Date: 20111024
  Transmission Date: 20120403
  Serious: Yes (Death, Other)
  Sender: FDA-Public Use
  Company Number: PHHY2011US95161

PATIENT
  Age: 44 Year
  Sex: Male

DRUGS (1)
  1. CYCLOSPORINE [Suspect]
     Indication: LIVER TRANSPLANT
     Dosage: UNK UKN, UNK

REACTIONS (13)
  - RENAL TUBULAR ATROPHY [None]
  - TOXICITY TO VARIOUS AGENTS [None]
  - RENAL FAILURE ACUTE [None]
  - DEATH [None]
  - KIDNEY FIBROSIS [None]
  - ARTERIAL DISORDER [None]
  - NEPHROPATHY TOXIC [None]
  - PROTEIN URINE PRESENT [None]
  - RENAL ARTERIOSCLEROSIS [None]
  - RENAL TUBULAR NECROSIS [None]
  - RENAL FAILURE CHRONIC [None]
  - BLOOD CREATININE INCREASED [None]
  - GLOMERULOSCLEROSIS [None]
